FAERS Safety Report 5377740-3 (Version None)
Quarter: 2007Q3

REPORT INFORMATION
  Report Type: 
  Country: None (occurrence: None)
  Receive Date: 20070703
  Receipt Date: 20070622
  Transmission Date: 20080115
  Serious: Yes (Hospitalization)
  Sender: FDA-Public Use
  Company Number: US-PFIZER INC-2007052009

PATIENT
  Sex: Female
  Weight: 46.3 kg

DRUGS (1)
  1. VIBRAMYCIN (TABLETS) [Suspect]
     Indication: SINUSITIS
     Route: 048
     Dates: start: 20061229, end: 20070107

REACTIONS (5)
  - ADVERSE DRUG REACTION [None]
  - DEHYDRATION [None]
  - DISORIENTATION [None]
  - HYPOTENSION [None]
  - SYNCOPE [None]
